FAERS Safety Report 4944411-4 (Version None)
Quarter: 2006Q1

REPORT INFORMATION
  Report Type: 
  Country: None (occurrence: None)
  Receive Date: 20060315
  Receipt Date: 20060303
  Transmission Date: 20060701
  Serious: Yes (Death)
  Sender: FDA-Public Use
  Company Number: US-MERCK-0603USA00819

PATIENT
  Age: 63 Year
  Sex: Male

DRUGS (1)
  1. VIOXX [Suspect]
     Route: 048
     Dates: start: 20000207, end: 20030301

REACTIONS (6)
  - CONGESTIVE CARDIOMYOPATHY [None]
  - OSTEOARTHRITIS [None]
  - PROSTATE CANCER [None]
  - RENAL CELL CARCINOMA STAGE UNSPECIFIED [None]
  - SUDDEN CARDIAC DEATH [None]
  - VENTRICULAR ARRHYTHMIA [None]
